FAERS Safety Report 8124029-5 (Version None)
Quarter: 2012Q1

REPORT INFORMATION
  Report Type: 
  Country: None (occurrence: None)
  Receive Date: 20120209
  Receipt Date: 20120203
  Transmission Date: 20120608
  Serious: Yes (Hospitalization, Other)
  Sender: FDA-Public Use
  Company Number: US-PFIZER INC-2011203100

PATIENT
  Sex: Female

DRUGS (3)
  1. CHANTIX [Suspect]
     Indication: SMOKING CESSATION THERAPY
     Dosage: 1 MG, UNK
     Dates: start: 20100915, end: 20101013
  2. ATIVAN [Concomitant]
     Indication: BIPOLAR DISORDER
     Dosage: UNK
     Dates: start: 19970101
  3. LITHIUM [Concomitant]
     Indication: BIPOLAR DISORDER
     Dosage: UNK
     Dates: start: 19750101

REACTIONS (12)
  - PARANOIA [None]
  - NIGHTMARE [None]
  - MARITAL PROBLEM [None]
  - IMPAIRED DRIVING ABILITY [None]
  - HALLUCINATION [None]
  - DEPRESSION [None]
  - ABNORMAL BEHAVIOUR [None]
  - ANXIETY [None]
  - INSOMNIA [None]
  - DIZZINESS [None]
  - IRRITABILITY [None]
  - ABNORMAL DREAMS [None]
